FAERS Safety Report 21094058 (Version 1)
Quarter: 2022Q3

REPORT INFORMATION
  Report Type: Spontaneous
  Country: US (occurrence: US)
  Receive Date: 20220718
  Receipt Date: 20220718
  Transmission Date: 20221026
  Serious: No
  Sender: FDA-Public Use
  Company Number: US-Hikma Pharmaceuticals USA Inc.-US-H14001-22-01562

PATIENT
  Sex: Female

DRUGS (1)
  1. KLOXXADO [Suspect]
     Active Substance: NALOXONE HYDROCHLORIDE
     Indication: Drug therapy
     Dosage: UNKNOWN
     Route: 065

REACTIONS (1)
  - Off label use [Unknown]
